FAERS Safety Report 18947688 (Version 1)
Quarter: 2021Q1

REPORT INFORMATION
  Report Type: Spontaneous
  Country: US (occurrence: US)
  Receive Date: 20210226
  Receipt Date: 20210226
  Transmission Date: 20210420
  Serious: No
  Sender: FDA-Public Use
  Company Number: US-009507513-2102USA008452

PATIENT
  Age: 40 Year
  Sex: Male

DRUGS (1)
  1. CUBICIN [Suspect]
     Active Substance: DAPTOMYCIN
     Indication: BREVIBACTERIUM INFECTION
     Dosage: 750 MILLIGRAM, Q24H
     Route: 042

REACTIONS (1)
  - Product use in unapproved indication [Unknown]
